FAERS Safety Report 23721236 (Version 1)
Quarter: 2024Q2

REPORT INFORMATION
  Report Type: Spontaneous
  Country: CA (occurrence: CA)
  Receive Date: 20240409
  Receipt Date: 20240409
  Transmission Date: 20240715
  Serious: Yes (Other)
  Sender: FDA-Public Use
  Company Number: CA-DRL-USA-LIT/CAN/24/0005423

PATIENT
  Age: 15 Year
  Sex: Female

DRUGS (1)
  1. AZACITIDINE [Suspect]
     Active Substance: AZACITIDINE
     Indication: Acute myeloid leukaemia
     Dosage: TWO CYCLES

REACTIONS (2)
  - Acute myeloid leukaemia [Unknown]
  - Treatment failure [Unknown]
